FAERS Safety Report 10566517 (Version 2)
Quarter: 2014Q4

REPORT INFORMATION
  Report Type: Spontaneous
  Country: US (occurrence: US)
  Receive Date: 20141105
  Receipt Date: 20141105
  Transmission Date: 20150529
  Serious: Yes (Hospitalization, Other)
  Sender: FDA-Public Use
  Company Number: US-PFIZER INC-2014264985

PATIENT
  Age: 66 Year
  Sex: Female
  Weight: 127 kg

DRUGS (1)
  1. INLYTA [Suspect]
     Active Substance: AXITINIB
     Indication: LEIOMYOSARCOMA
     Dosage: 10 MG, 2X/DAY
     Route: 048
     Dates: start: 20140919, end: 20141017

REACTIONS (11)
  - Insomnia [Not Recovered/Not Resolved]
  - Stomatitis [Unknown]
  - Palpitations [Not Recovered/Not Resolved]
  - Asthenia [Unknown]
  - Tachycardia [Unknown]
  - Product use issue [Unknown]
  - Left ventricular dysfunction [Unknown]
  - Atrial flutter [Not Recovered/Not Resolved]
  - Diarrhoea [Unknown]
  - Constipation [Unknown]
  - Atrial fibrillation [Not Recovered/Not Resolved]

NARRATIVE: CASE EVENT DATE: 2014
